FAERS Safety Report 16363978 (Version 1)
Quarter: 2019Q2

REPORT INFORMATION
  Report Type: Spontaneous
  Country: US (occurrence: US)
  Receive Date: 20190528
  Receipt Date: 20190528
  Transmission Date: 20190711
  Serious: Yes (Hospitalization)
  Sender: FDA-Public Use
  Company Number: US-ELI_LILLY_AND_COMPANY-US201905010616

PATIENT
  Age: 84 Year
  Sex: Female
  Weight: 75.6 kg

DRUGS (8)
  1. LISINOPRIL HCTZ [Concomitant]
     Active Substance: HYDROCHLOROTHIAZIDE\LISINOPRIL
  2. NORVASC [Concomitant]
     Active Substance: AMLODIPINE BESYLATE
  3. LETROZOLE ACCORD HEALTHCARE [Suspect]
     Active Substance: LETROZOLE
     Indication: BREAST CANCER FEMALE
     Dosage: 2.5 MG, DAILY
     Route: 048
     Dates: start: 20180628
  4. VERZENIO [Suspect]
     Active Substance: ABEMACICLIB
     Indication: BREAST CANCER FEMALE
     Dosage: 100 MG, BID
     Route: 048
     Dates: start: 20180628
  5. REPATHA [Concomitant]
     Active Substance: EVOLOCUMAB
  6. ZETIA [Concomitant]
     Active Substance: EZETIMIBE
  7. ASPIRIN 81 [Concomitant]
     Active Substance: ASPIRIN
  8. MELOXICAM. [Concomitant]
     Active Substance: MELOXICAM

REACTIONS (1)
  - Parkinson^s disease [Unknown]

NARRATIVE: CASE EVENT DATE: 20181113
